FAERS Safety Report 23999286 (Version 1)
Quarter: 2024Q2

REPORT INFORMATION
  Report Type: Spontaneous
  Country: AU (occurrence: AU)
  Receive Date: 20240621
  Receipt Date: 20240621
  Transmission Date: 20240716
  Serious: Yes (Other)
  Sender: FDA-Public Use
  Company Number: AU-SUN PHARMACEUTICAL INDUSTRIES LTD-2024RR-452688

PATIENT
  Age: 44 Year
  Sex: Female

DRUGS (3)
  1. LURASIDONE [Suspect]
     Active Substance: LURASIDONE
     Indication: Delusion
     Dosage: 120 MILLIGRAM, DAILY
     Route: 065
  2. OLANZAPINE [Suspect]
     Active Substance: OLANZAPINE
     Indication: Delusion
     Dosage: 20 MILLIGRAM, DAILY
     Route: 065
  3. CLOZAPINE [Suspect]
     Active Substance: CLOZAPINE
     Indication: Delusion
     Dosage: UNK
     Route: 065

REACTIONS (6)
  - Akathisia [Unknown]
  - Constipation [Unknown]
  - Sedation [Unknown]
  - Pain in extremity [Unknown]
  - Restlessness [Unknown]
  - Treatment noncompliance [Unknown]
